FAERS Safety Report 7437769-8 (Version None)
Quarter: 2011Q2

REPORT INFORMATION
  Report Type: 
  Country: None (occurrence: None)
  Receive Date: 20110426
  Receipt Date: 20110411
  Transmission Date: 20111010
  Serious: Yes (Other)
  Sender: FDA-Public Use
  Company Number: JP-CEPHALON-2011001803

PATIENT
  Age: 72 Year
  Sex: Male

DRUGS (2)
  1. BENDAMUSTINE HCL [Suspect]
     Indication: MANTLE CELL LYMPHOMA
     Route: 042
     Dates: start: 20110315, end: 20110316
  2. BENDAMUSTINE HCL [Suspect]
     Route: 042
     Dates: start: 20110328, end: 20110329

REACTIONS (2)
  - DISSEMINATED INTRAVASCULAR COAGULATION [None]
  - BLOOD CREATININE INCREASED [None]
